FAERS Safety Report 8920386 (Version 1)
Quarter: 2012Q4

REPORT INFORMATION
  Report Type: 
  Country: US (occurrence: US)
  Receive Date: 20121121
  Receipt Date: 20121121
  Transmission Date: 20130627
  Serious: No
  Sender: FDA-Public Use
  Company Number: US-ASTRAZENECA-2012SE85230

PATIENT
  Age: 64 Year
  Sex: Female

DRUGS (4)
  1. CRESTOR [Suspect]
     Route: 048
     Dates: end: 2012
  2. METFORMIN [Concomitant]
  3. CARDIOZYME [Concomitant]
  4. PLAVIX [Concomitant]

REACTIONS (1)
  - Alopecia [Recovering/Resolving]
